FAERS Safety Report 17791401 (Version 2)
Quarter: 2020Q4

REPORT INFORMATION
  Report Type: Spontaneous
  Country: RO (occurrence: RO)
  Receive Date: 20200515
  Receipt Date: 20201130
  Transmission Date: 20210113
  Serious: Yes (Death, Life-Threatening, Hospitalization, Other)
  Sender: FDA-Public Use
  Company Number: NVSC2020RO131063

PATIENT
  Age: 28 Year
  Sex: Male

DRUGS (1)
  1. RYDAPT [Suspect]
     Active Substance: MIDOSTAURIN
     Indication: ACUTE MYELOID LEUKAEMIA
     Dosage: 50 MG, BID
     Route: 048
     Dates: start: 20200124

REACTIONS (5)
  - Pyrexia [Fatal]
  - Influenza [Fatal]
  - Staphylococcal infection [Unknown]
  - Cough [Fatal]
  - Jugular vein thrombosis [Recovered/Resolved]
